FAERS Safety Report 11642706 (Version 6)
Quarter: 2016Q1

REPORT INFORMATION
  Report Type: Spontaneous
  Country: JP (occurrence: JP)
  Receive Date: 20151020
  Receipt Date: 20160112
  Transmission Date: 20160525
  Serious: Yes (Disabling, Other)
  Sender: FDA-Public Use
  Company Number: JP-AMGEN-JPNSP2015109183

PATIENT
  Age: 78 Year
  Sex: Male

DRUGS (12)
  1. METOLATE [Suspect]
     Active Substance: METHOTREXATE
     Dosage: 10 MG, WEEKLY
     Route: 048
     Dates: start: 20150208, end: 20150806
  2. CELECOXIB. [Concomitant]
     Active Substance: CELECOXIB
     Dosage: UNK
     Route: 048
  3. ENBREL [Suspect]
     Active Substance: ETANERCEPT
     Indication: RHEUMATOID ARTHRITIS
     Dosage: 25 MG, QWK
     Route: 058
     Dates: start: 20150508, end: 20150806
  4. METOLATE [Suspect]
     Active Substance: METHOTREXATE
     Dosage: 8 MG, WEEKLY
     Route: 048
     Dates: start: 20150123, end: 20150207
  5. PROGRAF [Concomitant]
     Active Substance: TACROLIMUS\TACROLIMUS ANHYDROUS
     Dosage: 1 MG, DAILY
     Route: 048
     Dates: start: 20150220, end: 20150305
  6. PROGRAF [Concomitant]
     Active Substance: TACROLIMUS\TACROLIMUS ANHYDROUS
     Dosage: 1.5 MG, DAILY
     Route: 048
     Dates: start: 20150306, end: 20150319
  7. CELECOXIB. [Concomitant]
     Active Substance: CELECOXIB
     Dosage: UNK
     Route: 048
  8. METOLATE [Suspect]
     Active Substance: METHOTREXATE
     Indication: RHEUMATOID ARTHRITIS
     Dosage: 6 MG, WEEKLY
     Route: 048
     Dates: start: 20150109, end: 20150122
  9. ENBREL [Suspect]
     Active Substance: ETANERCEPT
     Dosage: 50 MG, QWK
     Route: 058
     Dates: start: 20150807, end: 20150928
  10. PROGRAF [Concomitant]
     Active Substance: TACROLIMUS\TACROLIMUS ANHYDROUS
     Dosage: 2 MG, DAILY
     Route: 048
     Dates: start: 20150320
  11. TAKEPRON [Concomitant]
     Active Substance: LANSOPRAZOLE
     Dosage: UNK
  12. METOLATE [Suspect]
     Active Substance: METHOTREXATE
     Dosage: 8 MG, WEEKLY
     Route: 048
     Dates: start: 20150807, end: 20150928

REACTIONS (8)
  - Platelet count decreased [Unknown]
  - Epstein-Barr virus test positive [Unknown]
  - Oropharyngeal discomfort [Unknown]
  - Aspartate aminotransferase increased [Unknown]
  - Lymphoproliferative disorder [Not Recovered/Not Resolved]
  - CD20 antigen positive [Unknown]
  - Alanine aminotransferase increased [Unknown]
  - White blood cell count decreased [Unknown]

NARRATIVE: CASE EVENT DATE: 201508
